FAERS Safety Report 6338009-3 (Version None)
Quarter: 2009Q3

REPORT INFORMATION
  Report Type: 
  Country: None (occurrence: None)
  Receive Date: 20090902
  Receipt Date: 20090826
  Transmission Date: 20100115
  Serious: Yes (Other)
  Sender: FDA-Public Use
  Company Number: SE-PFIZER INC-2009235688

PATIENT

DRUGS (2)
  1. LIPITOR [Suspect]
     Indication: BLOOD CHOLESTEROL INCREASED
     Dosage: 20 MG, 1X/DAY
     Route: 065
     Dates: start: 20090508
  2. ATACAND [Concomitant]
     Indication: HYPERTENSION
     Dosage: 8 MG, DAILY
     Route: 065

REACTIONS (3)
  - BLOOD PRESSURE INCREASED [None]
  - DYSPHONIA [None]
  - EYE SWELLING [None]
